FAERS Safety Report 18571748 (Version 2)
Quarter: 2021Q1

REPORT INFORMATION
  Report Type: Spontaneous
  Country: US (occurrence: US)
  Receive Date: 20201202
  Receipt Date: 20210208
  Transmission Date: 20210419
  Serious: No
  Sender: FDA-Public Use
  Company Number: US-CELGENEUS-USA-20201107564

PATIENT
  Age: 60 Year
  Sex: Female
  Weight: 81.72 kg

DRUGS (2)
  1. POMALYST [Suspect]
     Active Substance: POMALIDOMIDE
     Indication: PLASMA CELL MYELOMA
     Dosage: 4 MILLIGRAM
     Route: 048
     Dates: start: 202001
  2. POMALYST [Suspect]
     Active Substance: POMALIDOMIDE
     Dosage: 4 MILLIGRAMS, FOR 10DAYS
     Route: 048
     Dates: start: 202011

REACTIONS (2)
  - Pain in extremity [Unknown]
  - Rash macular [Unknown]

NARRATIVE: CASE EVENT DATE: 202011
